FAERS Safety Report 24329204 (Version 1)
Quarter: 2024Q3

REPORT INFORMATION
  Report Type: Spontaneous
  Country: NL (occurrence: NL)
  Receive Date: 20240917
  Receipt Date: 20240917
  Transmission Date: 20241017
  Serious: Yes (Other)
  Sender: TEVA
  Company Number: None

PATIENT
  Age: 77 Year
  Sex: Male
  Weight: 70 kg

DRUGS (5)
  1. CLOZAPINE [Suspect]
     Active Substance: CLOZAPINE
     Indication: Aggression
     Dosage: 1X0,5: BRAND NAME NOT SPECIFIED
     Route: 065
     Dates: start: 20240820, end: 20240821
  2. BRIVIACT [Concomitant]
     Active Substance: BRIVARACETAM
     Indication: Product used for unknown indication
     Dosage: BRIVARACETAM TABLET/ BRIVIACT TABLET FILM COVER
     Route: 065
  3. HYPROMELLOSES [Concomitant]
     Active Substance: HYPROMELLOSES
     Indication: Product used for unknown indication
     Dosage: DOSAGE: 3.2 MG/ML BRAND NAME NOT SPECIFIED
     Route: 065
  4. CALCIUM CARBONATE\CHOLECALCIFEROL [Concomitant]
     Active Substance: CALCIUM CARBONATE\CHOLECALCIFEROL
     Indication: Product used for unknown indication
     Dosage: 2.5 G (GRAM)/800 UNITS: CALCIUMCARB/COLECALC CHEWABLE TB 2.5G/800IE (1000MG CA) / CALCI CHEW D3 C...
     Route: 065
  5. LACOSAMIDE [Concomitant]
     Active Substance: LACOSAMIDE
     Indication: Product used for unknown indication
     Dosage: BRAND NAME NOT SPECIFIED
     Route: 065

REACTIONS (5)
  - Epilepsy [Recovered/Resolved]
  - Asthenia [Recovered/Resolved]
  - Anisocoria [Recovered/Resolved]
  - Posture abnormal [Recovered/Resolved]
  - Dysarthria [Recovered/Resolved]
